FAERS Safety Report 4263894-9 (Version None)
Quarter: 2004Q1

REPORT INFORMATION
  Report Type: 
  Country: None (occurrence: None)
  Receive Date: 20040102
  Receipt Date: 20031208
  Transmission Date: 20041129
  Serious: Yes (Hospitalization)
  Sender: FDA-Public Use
  Company Number: EWC031137026

PATIENT
  Age: 72 Year
  Sex: Female
  Weight: 65 kg

DRUGS (7)
  1. HUMULIN N [Suspect]
     Indication: DIABETES MELLITUS NON-INSULIN-DEPENDENT
     Dosage: 14 IU/DAY
     Dates: start: 20030430
  2. ASPIRIN [Concomitant]
  3. EFOX-LONG [Concomitant]
  4. EGILOK(METOOPROLOL) [Concomitant]
  5. ENALAPRIL MALEATE [Concomitant]
  6. SPIRONOLACTONE [Concomitant]
  7. CORDARONE [Concomitant]

REACTIONS (5)
  - INFECTION [None]
  - INTERMITTENT CLAUDICATION [None]
  - LOCALISED INFECTION [None]
  - PERIPHERAL OCCLUSIVE DISEASE [None]
  - SKIN ULCER [None]
